FAERS Safety Report 8964030 (Version 1)
Quarter: 2012Q4

REPORT INFORMATION
  Report Type: 
  Country: US (occurrence: US)
  Receive Date: 20121213
  Receipt Date: 20121213
  Transmission Date: 20130627
  Serious: Yes (Hospitalization)
  Sender: FDA-Public Use
  Company Number: US-GLAXOSMITHKLINE-A0858778A

PATIENT
  Sex: Male
  Weight: 190.8 kg

DRUGS (2)
  1. AVANDAMET [Suspect]
     Indication: DIABETES MELLITUS
     Route: 048
     Dates: start: 200403, end: 200404
  2. AVANDIA [Suspect]
     Indication: TYPE 2 DIABETES MELLITUS
     Dosage: 4MG Per day
     Route: 048
     Dates: start: 20081208

REACTIONS (5)
  - Coagulopathy [Unknown]
  - Cardiac failure congestive [Unknown]
  - Heart rate irregular [Unknown]
  - Blood cholesterol increased [Unknown]
  - Pulmonary embolism [Unknown]
